FAERS Safety Report 15222848 (Version 1)
Quarter: 2018Q3

REPORT INFORMATION
  Report Type: Report from Study
  Country: GB (occurrence: GB)
  Receive Date: 20180731
  Receipt Date: 20180731
  Transmission Date: 20181010
  Serious: Yes (Hospitalization, Other)
  Sender: FDA-Public Use
  Company Number: PHHY2018GB055682

PATIENT
  Sex: Male

DRUGS (2)
  1. OMEPRAZOLE. [Concomitant]
     Active Substance: OMEPRAZOLE
     Indication: PRODUCT USED FOR UNKNOWN INDICATION
     Route: 065
  2. COSENTYX [Suspect]
     Active Substance: SECUKINUMAB
     Indication: PSORIATIC ARTHROPATHY
     Dosage: 300 MG, QMO
     Route: 058
     Dates: start: 20171218

REACTIONS (10)
  - Cushing^s syndrome [Recovering/Resolving]
  - Weight increased [Recovering/Resolving]
  - Sleep apnoea syndrome [Recovering/Resolving]
  - Infection [Recovering/Resolving]
  - Inflammatory bowel disease [Recovering/Resolving]
  - Blood triglycerides increased [Recovering/Resolving]
  - Nasal abscess [Recovering/Resolving]
  - Arthralgia [Recovering/Resolving]
  - Eye disorder [Recovering/Resolving]
  - Immune system disorder [Recovering/Resolving]
